FAERS Safety Report 6982764-6 (Version None)
Quarter: 2010Q3

REPORT INFORMATION
  Report Type: 
  Country: None (occurrence: None)
  Receive Date: 20100914
  Receipt Date: 20100318
  Transmission Date: 20110219
  Serious: No
  Sender: FDA-Public Use
  Company Number: US-PFIZER INC-2010035989

PATIENT
  Sex: Female

DRUGS (7)
  1. LYRICA [Suspect]
     Indication: FIBROMYALGIA
     Dosage: 50 MG, 1X/DAY
     Route: 048
     Dates: start: 20090401
  2. EVISTA [Concomitant]
     Dosage: UNK
  3. NADOLOL [Concomitant]
     Indication: HEART RATE IRREGULAR
     Dosage: UNK
  4. NADOLOL [Concomitant]
     Indication: BLOOD PRESSURE ABNORMAL
  5. VISTARIL [Concomitant]
     Dosage: UNK
  6. ACIPHEX [Concomitant]
     Dosage: UNK
  7. TEMAZEPAM [Concomitant]
     Dosage: UNK

REACTIONS (2)
  - PAIN [None]
  - WEIGHT INCREASED [None]
